FAERS Safety Report 7569098-6 (Version None)
Quarter: 2011Q2

REPORT INFORMATION
  Report Type: 
  Country: None (occurrence: None)
  Receive Date: 20110623
  Receipt Date: 20110617
  Transmission Date: 20111010
  Serious: Yes (Hospitalization)
  Sender: FDA-Public Use
  Company Number: US-ABBOTT-11P-163-0733413-00

PATIENT
  Sex: Male
  Weight: 79.45 kg

DRUGS (3)
  1. NIASPAN [Suspect]
     Indication: BLOOD CHOLESTEROL INCREASED
     Route: 048
  2. UNKNOWN MEDICATIONS [Suspect]
     Indication: PRODUCT USED FOR UNKNOWN INDICATION
     Route: 048
     Dates: end: 20110501
  3. MANY UNKNOWN MEDICATIONS [Concomitant]
     Indication: PRODUCT USED FOR UNKNOWN INDICATION
     Dosage: TAKING A WHOLE HANDFUL OF DIFFERENT MEDICATIONS.

REACTIONS (5)
  - APPARENT LIFE THREATENING EVENT [None]
  - GASTRIC ULCER [None]
  - INCORRECT DOSE ADMINISTERED [None]
  - FEELING ABNORMAL [None]
  - PNEUMONIA [None]
